FAERS Safety Report 8707632 (Version 2)
Quarter: 2013Q4

REPORT INFORMATION
  Report Type: Spontaneous
  Country: US (occurrence: US)
  Receive Date: 20120805
  Receipt Date: 20131101
  Transmission Date: 20140711
  Serious: No
  Sender: FDA-Public Use
  Company Number: US-009507513-1207USA009942

PATIENT
  Age: 80 Year
  Sex: Female

DRUGS (6)
  1. NEXIUM [Suspect]
     Route: 048
  2. ZOCOR [Interacting]
     Route: 048
  3. BENICAR [Suspect]
  4. AZOR (AMLODIPINE BESYLATE (+) OLMESARTAN MEDOXOMIL) [Interacting]
  5. LIPITOR [Concomitant]
  6. IMDUR [Concomitant]

REACTIONS (4)
  - Blood pressure increased [Unknown]
  - Gastrooesophageal reflux disease [Unknown]
  - Drug dose omission [Unknown]
  - Drug interaction [Unknown]
